FAERS Safety Report 24126029 (Version 1)
Quarter: 2024Q3

REPORT INFORMATION
  Report Type: Spontaneous
  Country: US (occurrence: US)
  Receive Date: 20240723
  Receipt Date: 20240723
  Transmission Date: 20241017
  Serious: Yes (Other)
  Sender: PFIZER
  Company Number: US-PFIZER INC-PV202400095208

PATIENT
  Age: 72 Year
  Sex: Female
  Weight: 54.422 kg

DRUGS (2)
  1. TUKYSA [Suspect]
     Active Substance: TUCATINIB
     Dosage: 2 TABLETS TWICE DAILY
  2. CAPECITABINE [Suspect]
     Active Substance: CAPECITABINE
     Dosage: UNK

REACTIONS (8)
  - Neuropathy peripheral [Unknown]
  - Skin discolouration [Unknown]
  - Skin disorder [Recovered/Resolved]
  - Hyperkeratosis [Unknown]
  - Nail growth abnormal [Unknown]
  - Nasal discharge discolouration [Unknown]
  - Restless legs syndrome [Unknown]
  - Diarrhoea [Unknown]
